FAERS Safety Report 12414377 (Version 1)
Quarter: 2016Q2

REPORT INFORMATION
  Report Type: Report from Study
  Country: US (occurrence: US)
  Receive Date: 20160528
  Receipt Date: 20160528
  Transmission Date: 20160815
  Serious: No
  Sender: FDA-Public Use
  Company Number: PHEH2016US012907

PATIENT
  Age: 28 Year
  Sex: Female

DRUGS (1)
  1. ILARIS [Suspect]
     Active Substance: CANAKINUMAB
     Indication: MUCKLE-WELLS SYNDROME
     Route: 058

REACTIONS (7)
  - Pain [Unknown]
  - Chills [Unknown]
  - Condition aggravated [Unknown]
  - Arthralgia [Unknown]
  - Skin discolouration [Unknown]
  - Influenza like illness [Unknown]
  - Headache [Unknown]
